FAERS Safety Report 7508598-1 (Version None)
Quarter: 2011Q2

REPORT INFORMATION
  Report Type: 
  Country: None (occurrence: None)
  Receive Date: 20110527
  Receipt Date: 20101201
  Transmission Date: 20111010
  Serious: No
  Sender: FDA-Public Use
  Company Number: A0898498A

PATIENT
  Age: 71 Year
  Sex: Female
  Weight: 47.7 kg

DRUGS (2)
  1. FLOLAN [Suspect]
     Indication: PULMONARY HYPERTENSION
     Dosage: 42NGKM CONTINUOUS
     Dates: start: 20040422
  2. TRACLEER [Concomitant]
     Route: 048

REACTIONS (1)
  - SECRETION DISCHARGE [None]
